FAERS Safety Report 23696868 (Version 3)
Quarter: 2024Q2

REPORT INFORMATION
  Report Type: Spontaneous
  Country: KR (occurrence: KR)
  Receive Date: 20240402
  Receipt Date: 20240501
  Transmission Date: 20240716
  Serious: No
  Sender: FDA-Public Use
  Company Number: KR-PFIZER INC-202400075806

PATIENT
  Age: 10 Year
  Sex: Male

DRUGS (1)
  1. GENOTROPIN [Suspect]
     Active Substance: SOMATROPIN
     Indication: Short stature
     Dosage: 6 TIMES WEEKLY
     Dates: start: 202306

REACTIONS (3)
  - Poor quality product administered [Unknown]
  - Product contamination physical [Unknown]
  - Product solubility abnormal [Unknown]
